FAERS Safety Report 22538694 (Version 1)
Quarter: 2023Q2

REPORT INFORMATION
  Report Type: Spontaneous
  Country: CN (occurrence: CN)
  Receive Date: 20230609
  Receipt Date: 20230609
  Transmission Date: 20230721
  Serious: Yes (Disabling, Other)
  Sender: FDA-Public Use
  Company Number: CN-SA-SAC20230606000104

PATIENT
  Age: 58 Year
  Sex: Female
  Weight: 59 kg

DRUGS (3)
  1. ENOXAPARIN SODIUM [Suspect]
     Active Substance: ENOXAPARIN SODIUM
     Indication: Fibrin D dimer increased
     Dosage: 6000 IU, QD
     Route: 058
     Dates: start: 20230523, end: 20230526
  2. KETOROLAC TROMETHAMINE [Concomitant]
     Active Substance: KETOROLAC TROMETHAMINE
     Indication: Pain
     Dosage: 30 MG, BID
     Route: 041
     Dates: start: 20230522, end: 20230525
  3. ESOMEPRAZOLE SODIUM [Concomitant]
     Active Substance: ESOMEPRAZOLE SODIUM
     Indication: Stress ulcer
     Dosage: 40 MG, QD
     Route: 041
     Dates: start: 20230523, end: 20230527

REACTIONS (7)
  - Abdominal discomfort [Recovering/Resolving]
  - Abdominal pain [Recovering/Resolving]
  - Abdominal pain upper [Recovering/Resolving]
  - Abdominal distension [Recovering/Resolving]
  - Proctalgia [Recovering/Resolving]
  - Gastrointestinal haemorrhage [Recovering/Resolving]
  - Discoloured vomit [Recovering/Resolving]

NARRATIVE: CASE EVENT DATE: 20230526
